FAERS Safety Report 6471754-8 (Version None)
Quarter: 2009Q4

REPORT INFORMATION
  Report Type: 
  Country: None (occurrence: None)
  Receive Date: 20091203
  Receipt Date: 20080307
  Transmission Date: 20100525
  Serious: Yes (Hospitalization)
  Sender: FDA-Public Use
  Company Number: US-ELI_LILLY_AND_COMPANY-US200803002613

PATIENT

DRUGS (4)
  1. CYMBALTA [Suspect]
     Indication: DEPRESSION
     Dosage: 30 MG, UNK
     Route: 064
     Dates: start: 20070101, end: 20070301
  2. CYMBALTA [Suspect]
     Dosage: 60 MG, UNK
     Route: 064
  3. CYMBALTA [Suspect]
     Dosage: 30 MG, UNK
     Route: 064
     Dates: start: 20070701, end: 20071115
  4. PRENATAL VITAMINS /01549301/ [Concomitant]
     Route: 064
     Dates: end: 20071115

REACTIONS (2)
  - DRUG EXPOSURE DURING PREGNANCY [None]
  - NEONATAL RESPIRATORY DISTRESS SYNDROME [None]
